FAERS Safety Report 6271531-7 (Version None)
Quarter: 2009Q3

REPORT INFORMATION
  Report Type: 
  Country: None (occurrence: None)
  Receive Date: 20090715
  Receipt Date: 20090715
  Transmission Date: 20100115
  Serious: Yes (Hospitalization)
  Sender: FDA-Public Use
  Company Number: None

PATIENT
  Age: 65 Year
  Sex: Male
  Weight: 70 kg

DRUGS (1)
  1. WARFARIN SODIUM [Suspect]
     Indication: VASCULAR OPERATION

REACTIONS (6)
  - ANAEMIA [None]
  - GASTRIC HAEMORRHAGE [None]
  - HAEMATEMESIS [None]
  - NAUSEA [None]
  - SYNCOPE [None]
  - VOMITING [None]
